FAERS Safety Report 9004846 (Version 1)
Quarter: 2013Q1

REPORT INFORMATION
  Report Type: Spontaneous
  Country: US (occurrence: None)
  Receive Date: 20130107
  Receipt Date: 20130107
  Transmission Date: 20140127
  Serious: Yes (Life-Threatening)
  Sender: FDA-Public Use
  Company Number: None

PATIENT
  Age: 81 Year
  Sex: Male

DRUGS (1)
  1. PIPERACILLIN SODIUM/SULBACTAM SODIUM [Suspect]
     Indication: INFECTION
     Route: 041
     Dates: start: 20121226, end: 20121226

REACTIONS (1)
  - Anaphylactic reaction [None]
